FAERS Safety Report 6584614-9 (Version None)
Quarter: 2010Q1

REPORT INFORMATION
  Report Type: 
  Country: None (occurrence: None)
  Receive Date: 20100213
  Receipt Date: 20100213
  Transmission Date: 20100710
  Serious: Yes (Hospitalization)
  Sender: FDA-Public Use
  Company Number: None

PATIENT
  Sex: Female

DRUGS (1)
  1. PAXIL [Suspect]
     Indication: DEPRESSION
     Dosage: 20 MG ONCE DAILY PO MID-NOVEMBER TO 1/9/10
     Route: 048
     Dates: start: 20091101, end: 20100109

REACTIONS (2)
  - DRUG ADMINISTRATION ERROR [None]
  - SEROTONIN SYNDROME [None]
